FAERS Safety Report 6915338-3 (Version None)
Quarter: 2010Q3

REPORT INFORMATION
  Report Type: 
  Country: None (occurrence: None)
  Receive Date: 20100809
  Receipt Date: 20091123
  Transmission Date: 20110219
  Serious: No
  Sender: FDA-Public Use
  Company Number: US-ABBOTT-09P-163-0611059-00

PATIENT
  Sex: Male
  Weight: 70.37 kg

DRUGS (1)
  1. DEPAKOTE ER [Suspect]
     Indication: AFFECTIVE DISORDER
     Route: 048
     Dates: start: 20090701

REACTIONS (3)
  - BLOOD CHOLESTEROL DECREASED [None]
  - BLOOD UREA INCREASED [None]
  - BLOOD UREA NITROGEN/CREATININE RATIO INCREASED [None]
